FAERS Safety Report 19477363 (Version 3)
Quarter: 2021Q3

REPORT INFORMATION
  Report Type: Report from Study
  Country: JP (occurrence: JP)
  Receive Date: 20210630
  Receipt Date: 20210813
  Transmission Date: 20211014
  Serious: Yes (Death, Hospitalization)
  Sender: FDA-Public Use
  Company Number: JP-ROCHE-2858040

PATIENT
  Age: 44 Year
  Sex: Female
  Weight: 65 kg

DRUGS (13)
  1. LOXOPROFEN SODIUM HYDRATE [Concomitant]
     Active Substance: LOXOPROFEN SODIUM DIHYDRATE
  2. DOPAMINE [Concomitant]
     Active Substance: DOPAMINE HYDROCHLORIDE
     Dosage: PER HOURS
  3. DOPAMINE [Concomitant]
     Active Substance: DOPAMINE HYDROCHLORIDE
     Dosage: PER HOURS
  4. BLINDED TUCATINIB [Suspect]
     Active Substance: TUCATINIB
     Indication: BREAST CANCER METASTATIC
     Dosage: MOST RECENT DOSE: 17/JUN/2021
     Route: 048
     Dates: start: 20210614
  5. DOPAMINE [Concomitant]
     Active Substance: DOPAMINE HYDROCHLORIDE
     Dosage: PER HOURS
  6. ADRENALINE [Concomitant]
     Active Substance: EPINEPHRINE
     Route: 042
  7. TRASTUZUMAB EMTANSINE [Suspect]
     Active Substance: ADO-TRASTUZUMAB EMTANSINE
     Indication: BREAST CANCER METASTATIC
     Dosage: MOST RECENT DOSE: 14/JUN/2021
     Route: 042
     Dates: start: 20210614
  8. REBAMIPIDE [Concomitant]
     Active Substance: REBAMIPIDE
     Dates: start: 20210611
  9. DOPAMINE [Concomitant]
     Active Substance: DOPAMINE HYDROCHLORIDE
     Dosage: PER HOURS
  10. DOPAMINE [Concomitant]
     Active Substance: DOPAMINE HYDROCHLORIDE
     Dosage: PER HOURS
  11. ADRENALINE [Concomitant]
     Active Substance: EPINEPHRINE
     Route: 042
  12. ISOSORBIDE. [Concomitant]
     Active Substance: ISOSORBIDE
     Dates: start: 20210607
  13. DOPAMINE [Concomitant]
     Active Substance: DOPAMINE HYDROCHLORIDE

REACTIONS (2)
  - Hydrocephalus [Not Recovered/Not Resolved]
  - Brain herniation [Fatal]

NARRATIVE: CASE EVENT DATE: 20210617
